FAERS Safety Report 17666319 (Version 1)
Quarter: 2020Q2

REPORT INFORMATION
  Report Type: Spontaneous
  Country: US (occurrence: US)
  Receive Date: 20200414
  Receipt Date: 20200414
  Transmission Date: 20200713
  Serious: No
  Sender: FDA-Public Use
  Company Number: US-SA-2020SA096057

PATIENT
  Sex: Female

DRUGS (7)
  1. FISH OIL [Concomitant]
     Active Substance: FISH OIL
  2. ALAVERT ALLERGY [Concomitant]
     Active Substance: LORATADINE
  3. ACIDOPHILUS [ASCORBIC ACID;BIFIDOBACTERIUM BIFIDUM;BIOTIN;D-LACTIC ACI [Concomitant]
  4. ALLEGRA [Concomitant]
     Active Substance: FEXOFENADINE HYDROCHLORIDE
  5. DAILY-VITE [Concomitant]
  6. DUPIXENT [Suspect]
     Active Substance: DUPILUMAB
     Indication: DERMATITIS ATOPIC
     Dosage: 300 MG Q14D
     Route: 058
  7. HYDROCORT [HYDROCORTISONE ACETATE] [Concomitant]

REACTIONS (1)
  - Injection site swelling [Not Recovered/Not Resolved]
